FAERS Safety Report 20553661 (Version 1)
Quarter: 2022Q1

REPORT INFORMATION
  Report Type: Spontaneous
  Country: SG (occurrence: SG)
  Receive Date: 20220304
  Receipt Date: 20220304
  Transmission Date: 20220423
  Serious: Yes (Hospitalization)
  Sender: FDA-Public Use
  Company Number: SG-GE HEALTHCARE-2022CSU001235

PATIENT
  Age: 65 Year
  Sex: Female

DRUGS (5)
  1. OMNIPAQUE [Suspect]
     Active Substance: IOHEXOL
     Indication: Angiogram
     Dosage: UNK, SINGLE
     Route: 013
     Dates: start: 2020, end: 2020
  2. OMNIPAQUE [Suspect]
     Active Substance: IOHEXOL
     Indication: Recurrent pyogenic cholangitis
  3. OMNIPAQUE [Suspect]
     Active Substance: IOHEXOL
     Indication: Biliary catheter insertion
     Dosage: UNK UNK, SINGLE
     Dates: start: 2020, end: 2020
  4. OMNIPAQUE [Suspect]
     Active Substance: IOHEXOL
     Indication: Endoscopic retrograde cholangiopancreatography
     Dosage: UNK UNK, SINGLE
     Dates: start: 2020, end: 2020
  5. OMNIPAQUE [Suspect]
     Active Substance: IOHEXOL
     Indication: Recurrent pyogenic cholangitis
     Dosage: UNK UNK, SINGLE
     Dates: start: 2020, end: 2020

REACTIONS (1)
  - Myxoedema coma [Recovering/Resolving]

NARRATIVE: CASE EVENT DATE: 20201117
